FAERS Safety Report 9871892 (Version 2)
Quarter: 2014Q1

REPORT INFORMATION
  Report Type: Spontaneous
  Country: US (occurrence: US)
  Receive Date: 20140205
  Receipt Date: 20140205
  Transmission Date: 20141002
  Serious: Yes (Hospitalization)
  Sender: FDA-Public Use
  Company Number: US-B.I. PHARMACEUTICALS,INC./RIDGEFIELD-2013-BI-29085BP

PATIENT
  Sex: Female
  Weight: 104.33 kg

DRUGS (10)
  1. PRADAXA [Suspect]
     Indication: ATRIAL FIBRILLATION
     Dosage: 300 MG
     Dates: start: 20110101, end: 20130204
  2. IBUPROFEN [Suspect]
     Indication: OSTEOARTHRITIS
     Dosage: 1200 MG
     Dates: end: 20130204
  3. ALEVE [Suspect]
     Indication: OSTEOARTHRITIS
     Dates: end: 20130204
  4. MULTAQ [Concomitant]
     Dosage: 800 MG
  5. LEVOTHYROXINE [Concomitant]
     Dosage: 137 MCG
  6. NIACIN [Concomitant]
     Dosage: 500 MG
  7. DETROL-LA [Concomitant]
     Dosage: 4 MG
  8. ZETIA [Concomitant]
     Dosage: 10 MG
  9. HYDROCHLOROTHIAZIDE [Concomitant]
     Dosage: 25 MG
  10. ATACAND [Concomitant]
     Dosage: 32 MG

REACTIONS (2)
  - Gastrointestinal haemorrhage [Unknown]
  - Haemorrhagic anaemia [Unknown]
